FAERS Safety Report 10343932 (Version 1)
Quarter: 2014Q3

REPORT INFORMATION
  Report Type: Spontaneous
  Country: US (occurrence: US)
  Receive Date: 20140727
  Receipt Date: 20140727
  Transmission Date: 20150326
  Serious: No
  Sender: FDA-Public Use
  Company Number: US-009507513-1407USA008484

PATIENT
  Sex: Female

DRUGS (2)
  1. COPPERTONE WATERBABIES PURE AND SIMPLE SPF 50 [Suspect]
     Active Substance: OCTINOXATE\OCTISALATE\ZINC OXIDE
     Indication: PRODUCT USED FOR UNKNOWN INDICATION
     Dosage: UNK, UNKNOWN
     Route: 061
  2. COPPERTONE WATERBABIES PURE AND SIMPLE SPF 50 [Suspect]
     Active Substance: OCTINOXATE\OCTISALATE\ZINC OXIDE
     Dosage: UNK, UNKNOWN
     Route: 061

REACTIONS (2)
  - Rash [Unknown]
  - Pruritus [Unknown]
